FAERS Safety Report 9912879 (Version 1)
Quarter: 2014Q1

REPORT INFORMATION
  Report Type: Spontaneous
  Country: US (occurrence: US)
  Receive Date: 20140220
  Receipt Date: 20140220
  Transmission Date: 20141002
  Serious: No
  Sender: FDA-Public Use
  Company Number: US-PFIZER INC-2014049035

PATIENT
  Age: 62 Year
  Sex: Male
  Weight: 64.85 kg

DRUGS (3)
  1. LYRICA [Suspect]
     Indication: MYALGIA
     Dosage: 75MG (BY TAKING THREE 25MG THREE TIMES A DAY) OR 150MG (BY TAKING THREE 50MG THREE TIMES A DAY)
     Dates: start: 2013
  2. LYRICA [Suspect]
     Indication: NEURALGIA
  3. KLONOPIN [Concomitant]
     Dosage: 1.5-2.0 MG TWO TO THREE TIMES A DAY

REACTIONS (7)
  - Sexual dysfunction [Not Recovered/Not Resolved]
  - Libido decreased [Not Recovered/Not Resolved]
  - Anorgasmia [Not Recovered/Not Resolved]
  - Decreased interest [Not Recovered/Not Resolved]
  - Orgasm abnormal [Not Recovered/Not Resolved]
  - Weight increased [Unknown]
  - Metabolic disorder [Unknown]
